FAERS Safety Report 10230113 (Version 4)
Quarter: 2014Q2

REPORT INFORMATION
  Report Type: Report from Study
  Country: JP (occurrence: JP)
  Receive Date: 20140611
  Receipt Date: 20140627
  Transmission Date: 20141212
  Serious: Yes (Life-Threatening, Hospitalization, Other)
  Sender: FDA-Public Use
  Company Number: JP-SHIRE-ALL1-2013-06275

PATIENT
  Age: 3 Year
  Sex: Male
  Weight: 19 kg

DRUGS (13)
  1. IDURSULFASE [Suspect]
     Indication: MUCOPOLYSACCHARIDOSIS II
     Dosage: 6 MG, 1X/2WKS (ALTERNATING WEEKLY DOSING OF 12MG)
     Route: 041
     Dates: start: 20120924
  2. IDURSULFASE [Suspect]
     Dosage: 12 MG, 1X/2WKS (ALTERNATING WEEKLY DOSING WITH 6MG)
     Route: 041
     Dates: start: 20120924
  3. IDURSULFASE [Suspect]
     Dosage: 0.36 MG, UNKNOWN
     Route: 041
     Dates: start: 20130909, end: 20130909
  4. IDURSULFASE [Suspect]
     Dosage: UNK
  5. AMBROXOL HYDROCHLORIDE [Concomitant]
     Indication: RESPIRATORY THERAPY
     Dosage: UNK UNK, UNKNOWN
     Route: 065
     Dates: start: 20121010
  6. MEPTIN [Concomitant]
     Indication: RESPIRATORY THERAPY
     Dosage: UNK
     Dates: start: 20121010
  7. ZESULAN [Concomitant]
     Indication: RESPIRATORY THERAPY
     Dosage: UNK UNK, UNKNOWN
     Route: 065
     Dates: start: 20121010
  8. PREDNISOLONE [Concomitant]
     Indication: RESPIRATORY THERAPY
     Dosage: UNK UNK, UNKNOWN
     Route: 065
     Dates: start: 20130908, end: 20130908
  9. CLEMASTINE FUMARATE [Concomitant]
     Indication: PREMEDICATION
     Dosage: UNK UNK, UNKNOWN
     Route: 065
     Dates: start: 20130908, end: 20130909
  10. METHYLPREDNISOLONE SODIUM SUCCINATE [Concomitant]
     Indication: PREMEDICATION
     Dosage: UNK UNK, UNKNOWN
     Route: 065
     Dates: start: 20130909, end: 20130909
  11. MONTELUKAST [Concomitant]
     Indication: PROPHYLAXIS
     Dosage: UNK, UNKNOWN
     Route: 048
  12. ANTI ALLERGIC AGENTS [Concomitant]
     Indication: PRODUCT USED FOR UNKNOWN INDICATION
     Dosage: UNK, UNKNOWN
     Route: 065
  13. CORTICOSTEROID NOS [Concomitant]
     Indication: PRODUCT USED FOR UNKNOWN INDICATION
     Dosage: UNK, UNKNOWN
     Route: 065

REACTIONS (6)
  - Bone marrow transplant [Unknown]
  - Infusion related reaction [Recovered/Resolved]
  - Rash generalised [Recovered/Resolved]
  - Wheezing [Recovered/Resolved]
  - Dyspnoea [Recovered/Resolved]
  - Urticaria [Recovered/Resolved]
